FAERS Safety Report 7876322-9 (Version None)
Quarter: 2011Q4

REPORT INFORMATION
  Report Type: 
  Country: None (occurrence: None)
  Receive Date: 20111031
  Receipt Date: 20111021
  Transmission Date: 20120403
  Serious: Yes (Other)
  Sender: FDA-Public Use
  Company Number: US-AMGEN-USASP2011054659

PATIENT
  Age: 64 Year
  Sex: Female

DRUGS (2)
  1. ENBREL [Suspect]
     Indication: RHEUMATOID ARTHRITIS
     Dosage: 50 MG, QWK
     Dates: start: 20110515, end: 20110801
  2. RITUXAN [Concomitant]

REACTIONS (10)
  - SWOLLEN TONGUE [None]
  - LYMPHADENOPATHY [None]
  - PAIN [None]
  - DRUG INEFFECTIVE [None]
  - DYSPNOEA [None]
  - MUSCULOSKELETAL STIFFNESS [None]
  - PHARYNGEAL OEDEMA [None]
  - EAR PAIN [None]
  - OEDEMA MOUTH [None]
  - GASTROOESOPHAGEAL REFLUX DISEASE [None]
